FAERS Safety Report 15782157 (Version 1)
Quarter: 2019Q1

REPORT INFORMATION
  Report Type: Report from Study
  Country: IE (occurrence: IE)
  Receive Date: 20190102
  Receipt Date: 20190102
  Transmission Date: 20190417
  Serious: Yes (Other)
  Sender: FDA-Public Use
  Company Number: IE-JNJFOC-20181234921

PATIENT
  Age: 69 Year
  Sex: Female

DRUGS (14)
  1. STELARA [Suspect]
     Active Substance: USTEKINUMAB
     Indication: VASCULITIS
     Dates: start: 20160802
  2. DESUNIN [Concomitant]
     Active Substance: CHOLECALCIFEROL
     Route: 050
  3. PALEXIA [Concomitant]
     Active Substance: TAPENTADOL HYDROCHLORIDE
     Route: 050
  4. DELTACORTRIL [Concomitant]
     Active Substance: PREDNISOLONE
     Route: 050
  5. TRAMADOL. [Concomitant]
     Active Substance: TRAMADOL
     Route: 050
  6. PARACETAMOL [Concomitant]
     Active Substance: ACETAMINOPHEN
     Route: 050
  7. CLONAZEPAM. [Concomitant]
     Active Substance: CLONAZEPAM
     Dosage: NIGHT
     Route: 050
  8. PANTOPRAZOLE [Concomitant]
     Active Substance: PANTOPRAZOLE
     Route: 050
  9. ASPIRIN. [Concomitant]
     Active Substance: ASPIRIN
     Route: 050
  10. PALEXIA [Concomitant]
     Active Substance: TAPENTADOL HYDROCHLORIDE
     Route: 050
  11. ENSURE [Concomitant]
     Active Substance: AMINO ACIDS\DEXTROSE\ELECTROLYTES NOS\SOYBEAN OIL\VITAMINS
     Route: 050
  12. RIVOTRIL [Concomitant]
     Active Substance: CLONAZEPAM
     Route: 050
  13. ELTROXIN [Concomitant]
     Active Substance: LEVOTHYROXINE
     Route: 050
  14. AMITRIPTYLINE [Concomitant]
     Active Substance: AMITRIPTYLINE
     Route: 050

REACTIONS (4)
  - Cellulitis [Recovered/Resolved]
  - Off label use [Unknown]
  - Lower respiratory tract infection [Recovered/Resolved]
  - Product use in unapproved indication [Unknown]

NARRATIVE: CASE EVENT DATE: 20160802
